FAERS Safety Report 21360359 (Version 5)
Quarter: 2023Q1

REPORT INFORMATION
  Report Type: Report from Study
  Country: CA (occurrence: CA)
  Receive Date: 20220921
  Receipt Date: 20230120
  Transmission Date: 20230418
  Serious: Yes (Death, Hospitalization, Other)
  Sender: FDA-Public Use
  Company Number: CA-GLAXOSMITHKLINE-CA2022AMR133126

PATIENT

DRUGS (4)
  1. MEPOLIZUMAB [Suspect]
     Active Substance: MEPOLIZUMAB
     Indication: Asthma
     Dosage: 100 MG, Z (EVERY 4 WEEKS)
     Route: 058
     Dates: start: 20181213
  2. MEPOLIZUMAB [Suspect]
     Active Substance: MEPOLIZUMAB
     Dosage: 100 MG, Z (EVERY 4 WEEKS)
     Route: 058
     Dates: start: 20181213
  3. MEPOLIZUMAB [Suspect]
     Active Substance: MEPOLIZUMAB
     Dosage: 100  MG Z EVERY 4 WEEKS
     Route: 058
     Dates: start: 20181213
  4. FLULAVAL QUADRIVALENT 2022/2023 [Suspect]
     Active Substance: INFLUENZA A VIRUS A/DARWIN/9/2021 IVR-228 (H3N2) ANTIGEN (UV, FORMALDEHYDE INACTIVATED)\INFLUENZA A
     Indication: Prophylaxis
     Dates: start: 20221125

REACTIONS (15)
  - Death [Fatal]
  - Cardiac failure [Unknown]
  - Renal failure [Unknown]
  - Asthenia [Unknown]
  - Gait inability [Unknown]
  - Haemoglobin abnormal [Unknown]
  - Blood gases abnormal [Unknown]
  - Fatigue [Not Recovered/Not Resolved]
  - Respiration abnormal [Unknown]
  - Dysphonia [Not Recovered/Not Resolved]
  - General physical health deterioration [Unknown]
  - Bedridden [Not Recovered/Not Resolved]
  - Diarrhoea [Not Recovered/Not Resolved]
  - Cough [Not Recovered/Not Resolved]
  - Somnolence [Unknown]

NARRATIVE: CASE EVENT DATE: 20220920
